FAERS Safety Report 8027375-9 (Version None)
Quarter: 2012Q1

REPORT INFORMATION
  Report Type: 
  Country: None (occurrence: None)
  Receive Date: 20120106
  Receipt Date: 20111228
  Transmission Date: 20120608
  Serious: Yes (Death, Hospitalization)
  Sender: FDA-Public Use
  Company Number: US-CELGENEUS-163-21880-11120582

PATIENT
  Sex: Female

DRUGS (4)
  1. AMARYL [Concomitant]
     Dosage: 2 MILLIGRAM
     Route: 048
  2. LOTENSIN [Concomitant]
     Indication: HYPERTENSION
     Dosage: 20/25
     Route: 065
  3. REVLIMID [Suspect]
     Indication: MYELODYSPLASTIC SYNDROME
     Dosage: 10 MILLIGRAM
     Route: 048
     Dates: start: 20100715, end: 20110920
  4. TOPROL-XL [Concomitant]
     Indication: HYPERTENSION
     Dosage: 50 MILLIGRAM
     Route: 065

REACTIONS (1)
  - SEPSIS [None]
